FAERS Safety Report 16879269 (Version 1)
Quarter: 2019Q4

REPORT INFORMATION
  Report Type: Spontaneous
  Country: US (occurrence: US)
  Receive Date: 20191003
  Receipt Date: 20191003
  Transmission Date: 20200122
  Serious: No
  Sender: FDA-Public Use
  Company Number: US-TEVA-2019-US-1115346

PATIENT
  Sex: Male

DRUGS (3)
  1. AUSTEDO [Suspect]
     Active Substance: DEUTETRABENAZINE
     Indication: MOVEMENT DISORDER
     Dosage: 30 MILLIGRAM DAILY; WEEK 1: TAKES 9MG TWICE A DAY WITH 6MG
     Route: 048
     Dates: start: 201906
  2. AUSTEDO [Suspect]
     Active Substance: DEUTETRABENAZINE
     Dosage: 36 MILLIGRAM DAILY; WEEK 2: 2 TABS TWICE A DAY
     Route: 048
  3. AUSTEDO [Suspect]
     Active Substance: DEUTETRABENAZINE
     Dosage: 42 MILLIGRAM DAILY; WEEK 3: 1 TAB TWICE A DAY WITH 12 MG
     Route: 048

REACTIONS (3)
  - Psychomotor hyperactivity [Unknown]
  - Restlessness [Unknown]
  - Product use in unapproved indication [Unknown]
